FAERS Safety Report 7508740-2 (Version None)
Quarter: 2011Q2

REPORT INFORMATION
  Report Type: 
  Country: None (occurrence: None)
  Receive Date: 20110527
  Receipt Date: 20101112
  Transmission Date: 20111010
  Serious: No
  Sender: FDA-Public Use
  Company Number: A0892231A

PATIENT
  Age: 51 Year
  Sex: Female

DRUGS (2)
  1. NO CONCURRENT MEDICATION [Concomitant]
  2. VENTOLIN [Suspect]
     Dosage: 2PUFF EIGHT TIMES PER DAY
     Route: 055
     Dates: start: 20101028, end: 20101110

REACTIONS (3)
  - DYSARTHRIA [None]
  - MUSCULAR WEAKNESS [None]
  - COORDINATION ABNORMAL [None]
